FAERS Safety Report 8537020-1 (Version None)
Quarter: 2012Q3

REPORT INFORMATION
  Report Type: 
  Country: None (occurrence: None)
  Receive Date: 20120718
  Receipt Date: 20120718
  Transmission Date: 20120928
  Serious: Yes (Hospitalization)
  Sender: FDA-Public Use
  Company Number: None

PATIENT
  Sex: Female

DRUGS (1)
  1. ADCIRCA [Suspect]
     Indication: PULMONARY ARTERIAL HYPERTENSION
     Dosage: 20 MG QD PO
     Route: 048
     Dates: start: 20120630, end: 20120703

REACTIONS (3)
  - MUSCLE RUPTURE [None]
  - CHEST PAIN [None]
  - MUSCLE STRAIN [None]
